FAERS Safety Report 20611881 (Version 3)
Quarter: 2022Q2

REPORT INFORMATION
  Report Type: Spontaneous
  Country: US (occurrence: None)
  Receive Date: 20220318
  Receipt Date: 20220421
  Transmission Date: 20220721
  Serious: No
  Sender: FDA-Public Use
  Company Number: 2022A084087

PATIENT
  Sex: Female
  Weight: 97.5 kg

DRUGS (3)
  1. BUDESONIDE\FORMOTEROL\GLYCOPYRRONIUM [Suspect]
     Active Substance: BUDESONIDE\FORMOTEROL\GLYCOPYRRONIUM
     Indication: Dyspnoea
     Dosage: 160MCG/9MCG/4.8MCG 2 PUFFS TWICE A DAY SINCE 4-5 MONTHS AGO, 160/7.2/5.0 MCG
     Route: 055
  2. SYMBICORT [Suspect]
     Active Substance: BUDESONIDE\FORMOTEROL FUMARATE DIHYDRATE
     Indication: Dyspnoea
     Dosage: 2 PUFFS TWICE A DAY
     Route: 055
  3. ALBUTEROL [Concomitant]
     Active Substance: ALBUTEROL

REACTIONS (6)
  - Feeling abnormal [Recovering/Resolving]
  - Contusion [Unknown]
  - Pneumonia [Unknown]
  - Drug ineffective [Unknown]
  - Device malfunction [Unknown]
  - Device delivery system issue [Unknown]
